FAERS Safety Report 24653935 (Version 1)
Quarter: 2024Q4

REPORT INFORMATION
  Report Type: Spontaneous
  Country: US (occurrence: US)
  Receive Date: 20241122
  Receipt Date: 20241122
  Transmission Date: 20250114
  Serious: No
  Sender: SANDOZ
  Company Number: US-SANDOZ-SDZ2024US097264

PATIENT
  Sex: Male

DRUGS (1)
  1. HYRIMOZ [Suspect]
     Active Substance: ADALIMUMAB-ADAZ
     Indication: Pain
     Dosage: 40 ML N/A DOSE EVERY N/A N/A
     Route: 065
     Dates: start: 20241121, end: 20241121

REACTIONS (1)
  - Drug ineffective [Unknown]
